FAERS Safety Report 12982928 (Version 3)
Quarter: 2017Q3

REPORT INFORMATION
  Report Type: Spontaneous
  Country: CN (occurrence: CN)
  Receive Date: 20161129
  Receipt Date: 20170721
  Transmission Date: 20171127
  Serious: Yes (Death, Hospitalization, Other)
  Sender: FDA-Public Use
  Company Number: CN-CELGENEUS-CHN-2015021651

PATIENT
  Age: 70 Year
  Sex: Female
  Weight: 55 kg

DRUGS (2)
  1. DEXAMETHASONE. [Suspect]
     Active Substance: DEXAMETHASONE
     Indication: PLASMA CELL MYELOMA
     Dosage: 40MG
     Route: 048
     Dates: start: 20140930, end: 20150205
  2. REVLIMID [Suspect]
     Active Substance: LENALIDOMIDE
     Indication: PLASMA CELL MYELOMA
     Dosage: 25MG
     Route: 048
     Dates: start: 20140930, end: 20150205

REACTIONS (2)
  - Hypercalcaemia [Not Recovered/Not Resolved]
  - Renal failure [Fatal]

NARRATIVE: CASE EVENT DATE: 20150201
